FAERS Safety Report 9190207 (Version 1)
Quarter: 2013Q1

REPORT INFORMATION
  Report Type: Spontaneous
  Country: US (occurrence: US)
  Receive Date: 20130326
  Receipt Date: 20130326
  Transmission Date: 20140127
  Serious: Yes (Hospitalization)
  Sender: FDA-Public Use
  Company Number: US-BAYER-2013-036070

PATIENT
  Age: 16 Year
  Sex: Female

DRUGS (3)
  1. YAZ [Suspect]
  2. METOCLOPRAMIDE [Concomitant]
  3. METRONIDAZOLE [Concomitant]

REACTIONS (1)
  - Acute coronary syndrome [Recovering/Resolving]
